FAERS Safety Report 9118928 (Version 1)
Quarter: 2013Q1

REPORT INFORMATION
  Report Type: Spontaneous
  Country: CN (occurrence: None)
  Receive Date: 20130130
  Receipt Date: 20130130
  Transmission Date: 20140127
  Serious: Yes (Death, Other)
  Sender: FDA-Public Use
  Company Number: CN-JNJFOC-20130112819

PATIENT
  Sex: 0

DRUGS (2)
  1. DECITABINE [Suspect]
     Indication: MYELODYSPLASTIC SYNDROME
     Route: 042
  2. DECITABINE [Suspect]
     Route: 042

REACTIONS (4)
  - Myelodysplastic syndrome [None]
  - Disease progression [None]
  - Myelodysplastic syndrome transformation [None]
  - Acute myeloid leukaemia [None]
